FAERS Safety Report 9445260 (Version 4)
Quarter: 2013Q4

REPORT INFORMATION
  Report Type: Report from Study
  Country: JP (occurrence: JP)
  Receive Date: 20130807
  Receipt Date: 20131028
  Transmission Date: 20140711
  Serious: Yes (Other)
  Sender: FDA-Public Use
  Company Number: JP-VIIV HEALTHCARE LIMITED-B0912945A

PATIENT
  Age: 4 Decade
  Sex: Male

DRUGS (15)
  1. CELSENTRI [Suspect]
     Indication: HIV INFECTION
     Route: 048
     Dates: start: 20121025
  2. EPZICOM [Suspect]
     Indication: HIV INFECTION
     Route: 048
     Dates: start: 20110309
  3. SAMTIREL [Suspect]
     Indication: ANTIFUNGAL PROPHYLAXIS
     Dosage: 1500MG PER DAY
     Route: 048
     Dates: start: 20120523
  4. NORVIR [Suspect]
     Indication: HIV INFECTION
     Route: 048
     Dates: start: 20110824
  5. PREZISTA NAIVE [Suspect]
     Indication: HIV INFECTION
     Route: 048
     Dates: start: 20110824
  6. FLUCONAZOLE [Suspect]
     Indication: DISSEMINATED CRYPTOCOCCOSIS
     Dosage: 400MG PER DAY
     Route: 065
     Dates: start: 20120229
  7. ANCOTIL [Suspect]
     Indication: DISSEMINATED CRYPTOCOCCOSIS
     Dosage: 1500MG FOUR TIMES PER DAY
     Route: 048
     Dates: start: 20110222, end: 20120618
  8. ANCOTIL [Suspect]
     Indication: DISSEMINATED CRYPTOCOCCOSIS
     Dosage: 1500MG TWICE PER DAY
     Route: 048
     Dates: start: 20120619
  9. AMBISOME [Suspect]
     Indication: DISSEMINATED CRYPTOCOCCOSIS
     Dosage: 300MG PER DAY
     Route: 042
     Dates: start: 20110304
  10. ISENTRESS [Concomitant]
     Indication: HIV INFECTION
     Route: 048
     Dates: start: 20120309
  11. ZITHROMAC [Concomitant]
     Indication: PROPHYLAXIS
     Route: 065
     Dates: start: 20110211, end: 20120424
  12. AMLODIPINE [Concomitant]
     Indication: HYPERTENSION
     Dosage: 5MG PER DAY
     Route: 048
     Dates: start: 20120314
  13. MICARDIS [Concomitant]
     Indication: HYPERTENSION
     Dosage: 40MG PER DAY
     Route: 048
     Dates: start: 20120411
  14. TAKEPRON [Concomitant]
     Indication: PROPHYLAXIS AGAINST GASTROINTESTINAL ULCER
     Dosage: 15MG PER DAY
     Route: 048
     Dates: start: 20120607
  15. ATOVAQUONE [Concomitant]
     Indication: ANTIFUNGAL PROPHYLAXIS
     Dosage: 1500MG PER DAY
     Route: 048
     Dates: start: 2011, end: 20120522

REACTIONS (3)
  - Renal impairment [Not Recovered/Not Resolved]
  - Hepatobiliary disease [Not Recovered/Not Resolved]
  - Hyperlipidaemia [Not Recovered/Not Resolved]
